FAERS Safety Report 6774585-4 (Version None)
Quarter: 2010Q2

REPORT INFORMATION
  Report Type: 
  Country: None (occurrence: None)
  Receive Date: 20100617
  Receipt Date: 20100607
  Transmission Date: 20101027
  Serious: Yes (Hospitalization)
  Sender: FDA-Public Use
  Company Number: PL-MEDIMMUNE-MEDI-0011285

PATIENT
  Sex: Male
  Weight: 4 kg

DRUGS (2)
  1. SYNAGIS [Suspect]
     Indication: BRONCHOPULMONARY DYSPLASIA
     Route: 030
     Dates: start: 20100326, end: 20100326
  2. SYNAGIS [Suspect]
     Route: 030
     Dates: start: 20100423

REACTIONS (1)
  - PNEUMONIA [None]
